FAERS Safety Report 6700483-8 (Version None)
Quarter: 2010Q2

REPORT INFORMATION
  Report Type: 
  Country: None (occurrence: None)
  Receive Date: 20100428
  Receipt Date: 20100421
  Transmission Date: 20101027
  Serious: Yes (Hospitalization)
  Sender: FDA-Public Use
  Company Number: A0601388A

PATIENT
  Age: 59 Year
  Sex: Male

DRUGS (3)
  1. LAMICTAL [Suspect]
     Indication: BIPOLAR DISORDER
     Dosage: 100MG PER DAY
     Route: 048
     Dates: start: 20060209, end: 20060301
  2. PROZAC [Concomitant]
  3. CONCERTA [Concomitant]

REACTIONS (27)
  - ABASIA [None]
  - BURNING SENSATION [None]
  - DISTURBANCE IN ATTENTION [None]
  - EATING DISORDER [None]
  - EYE SWELLING [None]
  - FATIGUE [None]
  - GROIN PAIN [None]
  - HAIR COLOUR CHANGES [None]
  - IMMUNE SYSTEM DISORDER [None]
  - INCREASED VISCOSITY OF BRONCHIAL SECRETION [None]
  - LIBIDO DISORDER [None]
  - MALAISE [None]
  - MUCOSAL EROSION [None]
  - MUCOSAL INFLAMMATION [None]
  - OEDEMA MUCOSAL [None]
  - PAIN [None]
  - PNEUMONIA [None]
  - PRODUCTIVE COUGH [None]
  - RASH [None]
  - RASH VESICULAR [None]
  - SKIN EXFOLIATION [None]
  - SKIN LESION [None]
  - SKIN ULCER [None]
  - STEVENS-JOHNSON SYNDROME [None]
  - STOMATITIS [None]
  - TOXIC EPIDERMAL NECROLYSIS [None]
  - WEIGHT DECREASED [None]
